FAERS Safety Report 9792604 (Version 1)
Quarter: 2014Q1

REPORT INFORMATION
  Report Type: Spontaneous
  Country: US (occurrence: US)
  Receive Date: 20140102
  Receipt Date: 20140102
  Transmission Date: 20141002
  Serious: No
  Sender: FDA-Public Use
  Company Number: US-SA-2013SA100851

PATIENT
  Age: 66 Year
  Sex: Male

DRUGS (15)
  1. AUBAGIO [Suspect]
     Indication: MULTIPLE SCLEROSIS
     Route: 048
     Dates: start: 2013
  2. TYLENOL [Concomitant]
  3. CITALOPRAM [Concomitant]
     Indication: ANTIDEPRESSANT THERAPY
  4. FOLIC ACID [Concomitant]
     Indication: VITAMIN SUPPLEMENTATION
  5. BACLOFEN [Concomitant]
  6. TENORMIN [Concomitant]
     Indication: BLOOD PRESSURE INCREASED
  7. ALLOPURINOL [Concomitant]
     Indication: BLOOD URIC ACID INCREASED
  8. ALLOPURINOL [Concomitant]
     Indication: GOUT
  9. LEVOTHYROXINE [Concomitant]
     Indication: THYROID DISORDER
  10. BENADRYL ALLERGY [Concomitant]
  11. VITAMIN D [Concomitant]
  12. FISH OIL [Concomitant]
  13. VITAMIN C [Concomitant]
  14. VITAMIN B12 [Concomitant]
  15. SIMVASTATIN [Concomitant]
     Indication: BLOOD CHOLESTEROL INCREASED

REACTIONS (3)
  - Confusional state [Unknown]
  - Disorientation [Unknown]
  - Influenza like illness [Recovered/Resolved]
